FAERS Safety Report 8953043 (Version 1)
Quarter: 2012Q4

REPORT INFORMATION
  Report Type: 
  Country: US (occurrence: US)
  Receive Date: 20121205
  Receipt Date: 20121205
  Transmission Date: 20130627
  Serious: Yes (Other)
  Sender: FDA-Public Use
  Company Number: CHPA2012US024302

PATIENT
  Age: 91 Year
  Sex: Male

DRUGS (1)
  1. DESENEX [Suspect]
     Indication: PRURITUS
     Dosage: Unk, 1 to 2 times daily
     Route: 061
     Dates: start: 1942

REACTIONS (5)
  - Cardiac disorder [Unknown]
  - Hip fracture [Unknown]
  - Gait disturbance [Unknown]
  - Walking aid user [Unknown]
  - Off label use [Unknown]
